FAERS Safety Report 14485427 (Version 2)
Quarter: 2018Q2

REPORT INFORMATION
  Report Type: Spontaneous
  Country: IT (occurrence: IT)
  Receive Date: 20180205
  Receipt Date: 20180622
  Transmission Date: 20180711
  Serious: Yes (Hospitalization)
  Sender: FDA-Public Use
  Company Number: IT-DRREDDYS-GER/ITL/18/0096094

PATIENT
  Age: 74 Year
  Sex: Male

DRUGS (3)
  1. FOLINA                             /00024201/ [Concomitant]
     Active Substance: FOLIC ACID
     Indication: PRODUCT USED FOR UNKNOWN INDICATION
  2. PANTOPRAZOLE [Concomitant]
     Active Substance: PANTOPRAZOLE
     Indication: PRODUCT USED FOR UNKNOWN INDICATION
  3. CLOPIDOGREL [Suspect]
     Active Substance: CLOPIDOGREL BISULFATE
     Indication: DEEP VEIN THROMBOSIS

REACTIONS (3)
  - Rectal haemorrhage [Recovered/Resolved]
  - Pallor [Recovered/Resolved]
  - Cold sweat [Recovered/Resolved]

NARRATIVE: CASE EVENT DATE: 20171018
